FAERS Safety Report 6171213-6 (Version None)
Quarter: 2009Q2

REPORT INFORMATION
  Report Type: 
  Country: None (occurrence: None)
  Receive Date: 20090429
  Receipt Date: 20090420
  Transmission Date: 20091009
  Serious: Yes (Other)
  Sender: FDA-Public Use
  Company Number: GB-NOVOPROD-273558

PATIENT
  Sex: Female
  Weight: 56.1 kg

DRUGS (5)
  1. INSULATARD PENFILL HM(GE) 3.0 ML [Suspect]
     Indication: TYPE 1 DIABETES MELLITUS
     Dosage: 24 IU, QD
     Route: 058
     Dates: start: 20080313
  2. INSULATARD PENFILL HM(GE) 3.0 ML [Suspect]
     Dosage: 24 IU, QD
     Route: 058
  3. INSULATARD PENFILL HM(GE) 3.0 ML [Suspect]
     Dosage: 7.5 IU, UNK
     Dates: start: 20080927, end: 20080927
  4. NOVORAPID PENFILL 3.0 ML [Suspect]
     Indication: TYPE 1 DIABETES MELLITUS
     Dosage: 30 IU, QD
     Route: 058
     Dates: start: 20080313
  5. FOLIC ACID [Concomitant]
     Dosage: 5 MG, QD
     Route: 048
     Dates: start: 20080306, end: 20080410

REACTIONS (3)
  - ABDOMINAL PAIN UPPER [None]
  - NAUSEA [None]
  - VOMITING [None]
